FAERS Safety Report 12607348 (Version 1)
Quarter: 2016Q3

REPORT INFORMATION
  Report Type: Spontaneous
  Country: US (occurrence: US)
  Receive Date: 20160729
  Receipt Date: 20160729
  Transmission Date: 20161109
  Serious: No
  Sender: FDA-Public Use
  Company Number: US-PFIZER INC-2016335662

PATIENT
  Sex: Female

DRUGS (2)
  1. ADVIL [Suspect]
     Active Substance: IBUPROFEN
     Dosage: 400 MG, DAILY (EACH MORNING)
     Route: 048
     Dates: start: 2016, end: 20160707
  2. ADVIL [Suspect]
     Active Substance: IBUPROFEN
     Dosage: 200 MG, DAILY
     Route: 048
     Dates: start: 2016, end: 2016

REACTIONS (7)
  - Pollakiuria [Unknown]
  - Nausea [Not Recovered/Not Resolved]
  - Abdominal distension [Not Recovered/Not Resolved]
  - Dysuria [Recovering/Resolving]
  - Urinary incontinence [Unknown]
  - Dyspepsia [Not Recovered/Not Resolved]
  - Urinary tract infection [Unknown]

NARRATIVE: CASE EVENT DATE: 2016
